FAERS Safety Report 4414169-6 (Version None)
Quarter: 2004Q3

REPORT INFORMATION
  Report Type: 
  Country: None (occurrence: None)
  Receive Date: 20040728
  Receipt Date: 20040423
  Transmission Date: 20050211
  Serious: Yes (Other)
  Sender: FDA-Public Use
  Company Number: 2001-BLP00063 (2)

PATIENT
  Age: 33 Year

DRUGS (4)
  1. VIRAMUNE [Suspect]
     Indication: HIV INFECTION
     Route: 048
     Dates: start: 20010320
  2. STAVUDINE (STAVUDINE) (KA) [Concomitant]
  3. LAMIVUDINE (LAMIVUDINE) (TA) [Concomitant]
  4. MULTIPLE VITAMINS INJECTIONS (MULTIVITAMINS) [Concomitant]

REACTIONS (5)
  - DEHYDRATION [None]
  - EATING DISORDER [None]
  - GASTROENTERITIS [None]
  - PYREXIA [None]
  - STOOLS WATERY [None]
